FAERS Safety Report 18719385 (Version 1)
Quarter: 2021Q1

REPORT INFORMATION
  Report Type: Spontaneous
  Country: FR (occurrence: FR)
  Receive Date: 20210108
  Receipt Date: 20210108
  Transmission Date: 20210419
  Serious: Yes (Hospitalization, Other)
  Sender: FDA-Public Use
  Company Number: FR-BAUSCH-BL-2020-039424

PATIENT
  Age: 19 Year
  Sex: Male

DRUGS (2)
  1. TEICOPLANINE MYLAN [Suspect]
     Active Substance: TEICOPLANIN
     Indication: CYSTIC FIBROSIS
     Route: 042
  2. GENTAMYCIN [Suspect]
     Active Substance: GENTAMICIN
     Indication: CYSTIC FIBROSIS
     Route: 065

REACTIONS (4)
  - Nausea [Recovering/Resolving]
  - Decreased appetite [Recovering/Resolving]
  - Inner ear disorder [Recovering/Resolving]
  - Dizziness [Recovering/Resolving]
